FAERS Safety Report 4425646-6 (Version None)
Quarter: 2004Q3

REPORT INFORMATION
  Report Type: 
  Country: None (occurrence: None)
  Receive Date: 20040810
  Receipt Date: 20040729
  Transmission Date: 20050211
  Serious: Yes (Hospitalization)
  Sender: FDA-Public Use
  Company Number: HQWYE671430JUL04

PATIENT
  Age: 67 Year
  Sex: Female
  Weight: 91.6 kg

DRUGS (1)
  1. CYCLOSPORINE [Suspect]
     Indication: PROPHYLAXIS AGAINST TRANSPLANT REJECTION
     Dosage: DOSE VARIES, ORAL
     Route: 048
     Dates: start: 19980201

REACTIONS (3)
  - JAUNDICE [None]
  - LIVER TRANSPLANT REJECTION [None]
  - TRANSPLANT FAILURE [None]
